FAERS Safety Report 6969445-X (Version None)
Quarter: 2010Q3

REPORT INFORMATION
  Report Type: 
  Country: None (occurrence: None)
  Receive Date: 20100907
  Receipt Date: 20100901
  Transmission Date: 20110219
  Serious: Yes (Hospitalization)
  Sender: FDA-Public Use
  Company Number: US-MERCK-1003USA01840

PATIENT
  Age: 68 Year
  Sex: Female
  Weight: 57 kg

DRUGS (5)
  1. FOSAMAX [Suspect]
     Indication: OSTEOPOROSIS
     Route: 048
     Dates: start: 20050310, end: 20071011
  2. FOSAMAX [Suspect]
     Indication: OSTEOPOROSIS PROPHYLAXIS
     Route: 048
     Dates: start: 20050310, end: 20071011
  3. LIPITOR [Concomitant]
     Indication: BLOOD CHOLESTEROL INCREASED
     Route: 065
     Dates: start: 20050224, end: 20090925
  4. LIPITOR [Concomitant]
     Indication: HYPERLIPIDAEMIA
     Route: 065
     Dates: start: 20050224, end: 20090925
  5. FOSAMAX PLUS D [Suspect]
     Route: 048

REACTIONS (18)
  - ASTHMA [None]
  - BACTERIAL INFECTION [None]
  - DENTAL CARIES [None]
  - FUNGAL INFECTION [None]
  - GINGIVITIS [None]
  - HYPERSENSITIVITY [None]
  - INFECTION [None]
  - INFLAMMATION [None]
  - OSTEOARTHRITIS [None]
  - OSTEOMYELITIS [None]
  - OSTEONECROSIS OF JAW [None]
  - PALPITATIONS [None]
  - RHEUMATOID ARTHRITIS [None]
  - SINUSITIS [None]
  - TOOTH DISORDER [None]
  - TOOTH INFECTION [None]
  - TOOTHACHE [None]
  - UPPER RESPIRATORY TRACT INFECTION [None]
